FAERS Safety Report 7769734-5 (Version None)
Quarter: 2011Q3

REPORT INFORMATION
  Report Type: 
  Country: None (occurrence: None)
  Receive Date: 20110922
  Receipt Date: 20100806
  Transmission Date: 20111222
  Serious: No
  Sender: FDA-Public Use
  Company Number: US-ASTRAZENECA-2010SE37009

PATIENT
  Sex: Male

DRUGS (2)
  1. SEROQUEL [Suspect]
     Route: 048
     Dates: start: 20081201, end: 20100601
  2. SEROQUEL [Suspect]
     Route: 048

REACTIONS (5)
  - DEPRESSION [None]
  - WEIGHT INCREASED [None]
  - WEIGHT LOSS POOR [None]
  - INCORRECT DOSE ADMINISTERED [None]
  - ANXIETY [None]
